FAERS Safety Report 9697752 (Version 1)
Quarter: 2013Q4

REPORT INFORMATION
  Report Type: Spontaneous
  Country: US (occurrence: US)
  Receive Date: 20131120
  Receipt Date: 20131120
  Transmission Date: 20140711
  Serious: No
  Sender: FDA-Public Use
  Company Number: US-PFIZER INC-2013327857

PATIENT
  Sex: Female

DRUGS (1)
  1. ATORVASTATIN CALCIUM [Suspect]
     Dosage: UNK

REACTIONS (5)
  - Anxiety [Unknown]
  - Nightmare [Unknown]
  - Negative thoughts [Unknown]
  - Agitation [Unknown]
  - Conversion disorder [Unknown]
